FAERS Safety Report 8970767 (Version 3)
Quarter: 2013Q1

REPORT INFORMATION
  Report Type: Spontaneous
  Country: FR (occurrence: FR)
  Receive Date: 20121218
  Receipt Date: 20130319
  Transmission Date: 20140127
  Serious: Yes (Hospitalization, Other)
  Sender: FDA-Public Use
  Company Number: FR-MERCK-1212FRA005577

PATIENT
  Sex: Male
  Weight: .93 kg

DRUGS (6)
  1. VELMETIA [Suspect]
     Indication: TYPE 2 DIABETES MELLITUS
     Dosage: 1 DF, BID
     Route: 064
     Dates: start: 2010, end: 20120402
  2. COVERSYL [Suspect]
     Indication: HYPERTENSION
     Dosage: UNK
     Route: 064
     Dates: start: 2003, end: 20120402
  3. ALDOMET [Concomitant]
     Dosage: 250 MG, TID
     Route: 064
     Dates: start: 20120510, end: 20120619
  4. NOVORAPID [Concomitant]
     Indication: TYPE 2 DIABETES MELLITUS
     Dosage: 1 DF, TID
     Route: 064
     Dates: start: 20120403, end: 20120619
  5. INSULATARD (INSULIN HUMAN, ISOPHANE) [Concomitant]
     Dosage: UNK
     Route: 064
     Dates: start: 20120403, end: 20120619
  6. TRANDATE [Concomitant]
     Dosage: 200 MG, BID
     Route: 064
     Dates: start: 20120510, end: 20120619

REACTIONS (4)
  - Foetal growth restriction [Unknown]
  - Premature baby [Unknown]
  - Low birth weight baby [Unknown]
  - Foetal exposure during pregnancy [Unknown]
